FAERS Safety Report 9477840 (Version 2)
Quarter: 2013Q3

REPORT INFORMATION
  Report Type: Spontaneous
  Country: US (occurrence: None)
  Receive Date: 20130826
  Receipt Date: 20130826
  Transmission Date: 20140515
  Serious: Yes (Disabling)
  Sender: FDA-Public Use
  Company Number: None

PATIENT
  Age: 70 Year
  Sex: Female
  Weight: 67.13 kg

DRUGS (13)
  1. PROPOFOL [Suspect]
     Indication: SEDATION
     Dosage: ONCE THROUGH IV
     Route: 042
     Dates: start: 20130808, end: 20130808
  2. PROPOFOL [Suspect]
     Indication: CATARACT
     Dosage: ONCE THROUGH IV
     Route: 042
     Dates: start: 20130808, end: 20130808
  3. FENTANYL [Suspect]
  4. VERSED [Concomitant]
  5. DIGESTIVE ENZYMES [Concomitant]
  6. ASCORBIC ACID [Concomitant]
  7. VITAMIN D3 [Concomitant]
  8. GLUCOSAMINE [Concomitant]
  9. CHONDROITON [Concomitant]
  10. MSM [Concomitant]
  11. PROBIOTICS [Concomitant]
  12. B COMPLEX [Concomitant]
  13. FISH OIL [Concomitant]

REACTIONS (1)
  - Urticaria [None]
